FAERS Safety Report 19402465 (Version 1)
Quarter: 2021Q2

REPORT INFORMATION
  Report Type: Spontaneous
  Country: FR (occurrence: FR)
  Receive Date: 20210611
  Receipt Date: 20210611
  Transmission Date: 20210717
  Serious: Yes (Other)
  Sender: FDA-Public Use
  Company Number: FR-AUROBINDO-AUR-APL-2021-024498

PATIENT
  Age: 63 Year
  Sex: Female
  Weight: 61 kg

DRUGS (11)
  1. CARBOPLATIN. [Suspect]
     Active Substance: CARBOPLATIN
     Dosage: 555 MILLIGRAM, 3 WEEK (6 CURES)
     Route: 042
     Dates: start: 20140801, end: 20141114
  2. CARBOPLATIN. [Suspect]
     Active Substance: CARBOPLATIN
     Indication: OVARIAN CANCER RECURRENT
     Dosage: 440 MILLIGRAM, 3 WEEK (4 CURES)
     Route: 042
     Dates: start: 20200917, end: 20201210
  3. PACLITAXEL. [Suspect]
     Active Substance: PACLITAXEL
     Dosage: 326 MILLIGRAM, 1 MONTH, 14 DOSES ? J1, J8, J15 (CYCLES DE 28 JOURS)
     Route: 042
     Dates: start: 20170629, end: 20171205
  4. PACLITAXEL. [Suspect]
     Active Substance: PACLITAXEL
     Indication: OVARIAN CANCER RECURRENT
     Dosage: 280 MILLIGRAM, 3 WEEK, 6 CURES
     Route: 042
     Dates: start: 20140808, end: 20141114
  5. CARBOPLATIN. [Suspect]
     Active Substance: CARBOPLATIN
     Dosage: 520 MILLIGRAM, 3 WEEK, 4 CURES
     Route: 042
     Dates: start: 20160211, end: 20160503
  6. GEMCITABINE. [Suspect]
     Active Substance: GEMCITABINE
     Indication: OVARIAN CANCER RECURRENT
     Dosage: 4000 MILLIGRAM, 3 WEEK, 7 CURES
     Route: 042
     Dates: start: 20160211, end: 20160503
  7. AVASTIN [Suspect]
     Active Substance: BEVACIZUMAB
     Indication: OVARIAN CANCER RECURRENT
     Dosage: 945 MILLIGRAM, 3 WEEK, 23 CURES
     Route: 042
     Dates: start: 20160211, end: 20170530
  8. LYNPARZA [Suspect]
     Active Substance: OLAPARIB
     Dosage: 800 MILLIGRAM, ONCE A DAY
     Route: 048
     Dates: start: 201712, end: 202009
  9. CARBOPLATIN. [Suspect]
     Active Substance: CARBOPLATIN
     Dosage: 680 MILLIGRAM, 4 WEEK (6 CURES)
     Route: 042
     Dates: start: 20170629, end: 20171128
  10. CAELYX [Suspect]
     Active Substance: DOXORUBICIN HYDROCHLORIDE
     Indication: OVARIAN CANCER RECURRENT
     Dosage: 48 MILLIGRAM, 4 WEEK (4 CURES)
     Route: 042
     Dates: start: 20200917, end: 20201210
  11. LYNPARZA [Suspect]
     Active Substance: OLAPARIB
     Indication: OVARIAN CANCER RECURRENT
     Dosage: UNK
     Route: 048
     Dates: start: 201411, end: 201502

REACTIONS (1)
  - Myelodysplastic syndrome [Not Recovered/Not Resolved]

NARRATIVE: CASE EVENT DATE: 20210125
